FAERS Safety Report 13586539 (Version 2)
Quarter: 2017Q2

REPORT INFORMATION
  Report Type: Report from Study
  Country: US (occurrence: IN)
  Receive Date: 20170526
  Receipt Date: 20170623
  Transmission Date: 20170830
  Serious: Yes (Death, Other)
  Sender: FDA-Public Use
  Company Number: US-PFIZER INC-2017230172

PATIENT
  Age: 29 Month
  Sex: Female

DRUGS (4)
  1. CYCLOPHOSPHAMIDE. [Suspect]
     Active Substance: CYCLOPHOSPHAMIDE
     Indication: ENCEPHALITIS
     Dosage: UNK
  2. METHYLPREDNISOLONE SODIUM SUCCINATE. [Suspect]
     Active Substance: METHYLPREDNISOLONE SODIUM SUCCINATE
     Indication: ENCEPHALITIS
     Dosage: 30 MG/KG, DAILY (WITH A SLOW TAPER)
     Route: 042
  3. RITUXIMAB [Suspect]
     Active Substance: RITUXIMAB
     Indication: ENCEPHALITIS
     Dosage: UNK, CYCLIC (WEEKLY INFUSIONS, THREE TO FOUR CYCLES)
  4. IMMUNOGLOBULIN G HUMAN [Suspect]
     Active Substance: HUMAN IMMUNOGLOBULIN G
     Indication: ENCEPHALITIS
     Dosage: UNK (2 G/KG DIVIDED OVER 2 TO 5 DAYS)
     Route: 042

REACTIONS (1)
  - Drug ineffective [Fatal]
